FAERS Safety Report 4279535-0 (Version None)
Quarter: 2004Q1

REPORT INFORMATION
  Report Type: 
  Country: None (occurrence: None)
  Receive Date: 20040123
  Receipt Date: 20040112
  Transmission Date: 20041129
  Serious: Yes (Hospitalization)
  Sender: FDA-Public Use
  Company Number: US062367

PATIENT
  Age: 59 Year
  Sex: Female
  Weight: 82.2 kg

DRUGS (7)
  1. NEULASTA [Suspect]
     Dosage: 6 MG, AFTER CHEMO, SC
     Route: 058
     Dates: start: 20031226, end: 20031226
  2. HYCAMPTAMINE [Concomitant]
  3. ACARBOSE [Concomitant]
  4. ESCITALOPRAM [Concomitant]
  5. CALCIUM [Concomitant]
  6. PACLITAXEL [Concomitant]
  7. CARBOPLATIN [Concomitant]

REACTIONS (6)
  - ARTHRALGIA [None]
  - ASTHENIA [None]
  - BACK PAIN [None]
  - MYALGIA [None]
  - PNEUMONIA [None]
  - WHEEZING [None]
